FAERS Safety Report 26187503 (Version 1)
Quarter: 2025Q4

REPORT INFORMATION
  Report Type: Report from Study
  Country: CA (occurrence: CA)
  Receive Date: 20251222
  Receipt Date: 20251222
  Transmission Date: 20260117
  Serious: Yes (Other)
  Sender: NOVARTIS
  Company Number: CA-002147023-NVSC2023CA145579

PATIENT
  Age: 44 Year
  Sex: Female

DRUGS (11)
  1. COSENTYX [Suspect]
     Active Substance: SECUKINUMAB
     Indication: Psoriasis
     Dosage: 300 MG, QW (WEEKS 0, 1, 2, 3, AND 4)
     Route: 058
     Dates: start: 20230529
  2. COSENTYX [Suspect]
     Active Substance: SECUKINUMAB
     Indication: Psoriatic arthropathy
     Dosage: 300 MG, Q2W
     Route: 058
  3. COSENTYX [Suspect]
     Active Substance: SECUKINUMAB
     Dosage: UNK (ASSOCIATED INJECTION) (INJECTION NOS)
     Route: 050
     Dates: start: 202306
  4. COSENTYX [Suspect]
     Active Substance: SECUKINUMAB
     Dosage: UNK (ASSOCIATED INJECTION) (INJECTION NOS)
     Route: 050
     Dates: start: 20230710
  5. COSENTYX [Suspect]
     Active Substance: SECUKINUMAB
     Dosage: UNK (ASSOCIATED INJECTION) (INJECTION NOS)
     Route: 050
     Dates: start: 20230821
  6. COSENTYX [Suspect]
     Active Substance: SECUKINUMAB
     Dosage: 300 MG, Q2W
     Route: 058
  7. COSENTYX [Suspect]
     Active Substance: SECUKINUMAB
     Dosage: 300 MG, Q2W
     Route: 058
     Dates: start: 202402
  8. COSENTYX [Suspect]
     Active Substance: SECUKINUMAB
     Dosage: 300 MG, Q2W
     Route: 058
  9. HUMIRA [Concomitant]
     Active Substance: ADALIMUMAB
     Indication: Product used for unknown indication
     Dosage: UNK
     Route: 065
     Dates: start: 2018, end: 202305
  10. DESONIDE [Concomitant]
     Active Substance: DESONIDE
     Indication: Product used for unknown indication
     Dosage: UNK (OINTMENT)
     Route: 065
  11. ENSTILAR [Concomitant]
     Active Substance: BETAMETHASONE DIPROPIONATE\CALCIPOTRIENE HYDRATE
     Indication: Product used for unknown indication
     Dosage: UNK
     Route: 065

REACTIONS (29)
  - Psoriatic arthropathy [Unknown]
  - Arthralgia [Not Recovered/Not Resolved]
  - Fatigue [Unknown]
  - Psoriasis [Unknown]
  - Lower respiratory tract infection [Unknown]
  - Stress [Unknown]
  - Anxiety [Unknown]
  - Paranasal sinus discomfort [Recovering/Resolving]
  - Nasal congestion [Recovered/Resolved]
  - Injection site pain [Unknown]
  - Hypersensitivity [Unknown]
  - Ear congestion [Unknown]
  - Excessive cerumen production [Unknown]
  - Infection [Unknown]
  - Illness [Unknown]
  - Vomiting [Unknown]
  - Decreased appetite [Unknown]
  - Abdominal tenderness [Unknown]
  - Heat exhaustion [Unknown]
  - Drug ineffective [Unknown]
  - Product storage error [Unknown]
  - Insomnia [Unknown]
  - Carpal tunnel syndrome [Unknown]
  - Immune system disorder [Unknown]
  - Nasopharyngitis [Unknown]
  - Onychoclasis [Unknown]
  - Bronchitis [Unknown]
  - Sinusitis [Unknown]
  - Incorrect dose administered [Unknown]

NARRATIVE: CASE EVENT DATE: 20230601
